FAERS Safety Report 15048394 (Version 2)
Quarter: 2018Q3

REPORT INFORMATION
  Report Type: Spontaneous
  Country: JP (occurrence: JP)
  Receive Date: 20180622
  Receipt Date: 20180726
  Transmission Date: 20181010
  Serious: Yes (Death, Hospitalization, Other)
  Sender: FDA-Public Use
  Company Number: JP-CONCORDIA PHARMACEUTICALS INC.-E2B_00011751

PATIENT
  Age: 62 Year
  Sex: Male

DRUGS (5)
  1. LANSOPRAZOLE. [Concomitant]
     Active Substance: LANSOPRAZOLE
  2. AMIODARONE [Suspect]
     Active Substance: AMIODARONE
     Indication: VENTRICULAR TACHYCARDIA
  3. ENALAPRIL [Concomitant]
     Active Substance: ENALAPRIL
  4. PREDNISOLONE. [Suspect]
     Active Substance: PREDNISOLONE
  5. METOPROLOL. [Concomitant]
     Active Substance: METOPROLOL

REACTIONS (5)
  - Hepatic cirrhosis [Unknown]
  - Hepatic failure [Fatal]
  - Ascites [Unknown]
  - Splenomegaly [Unknown]
  - Hepatotoxicity [Fatal]
